FAERS Safety Report 5869337-3 (Version None)
Quarter: 2008Q3

REPORT INFORMATION
  Report Type: 
  Country: None (occurrence: None)
  Receive Date: 20080903
  Receipt Date: 20080829
  Transmission Date: 20090109
  Serious: Yes (Hospitalization)
  Sender: FDA-Public Use
  Company Number: US-GENENTECH-266824

PATIENT
  Sex: Male
  Weight: 82.086 kg

DRUGS (4)
  1. BEVACIZUMAB [Suspect]
     Indication: HEAD AND NECK CANCER
     Dosage: 15 MG/KG, DAYS 1+22
  2. ERLOTINIB [Suspect]
     Indication: HEAD AND NECK CANCER
     Dosage: 150 MG, QD
     Route: 048
  3. TAXOL [Suspect]
     Indication: HEAD AND NECK CANCER
     Dosage: 50 MG/M2, 2/WEEK
  4. RADIOTHERAPY [Suspect]
     Indication: HEAD AND NECK CANCER

REACTIONS (3)
  - MUCOSAL INFLAMMATION [None]
  - OESOPHAGITIS [None]
  - RASH [None]
